FAERS Safety Report 5001856-4 (Version None)
Quarter: 2006Q2

REPORT INFORMATION
  Report Type: 
  Country: None (occurrence: None)
  Receive Date: 20060515
  Receipt Date: 20060504
  Transmission Date: 20061013
  Serious: Yes (Other)
  Sender: FDA-Public Use
  Company Number: FR-GLAXOSMITHKLINE-B0423229A

PATIENT
  Age: 42 Year
  Sex: Female

DRUGS (2)
  1. PAROXETINE HYDROCHLORIDE [Suspect]
     Indication: FATIGUE
     Dosage: 20MG PER DAY
     Route: 048
     Dates: start: 20000101
  2. XANAX [Concomitant]
     Route: 048

REACTIONS (20)
  - AKATHISIA [None]
  - CEREBRAL DISORDER [None]
  - DEREALISATION [None]
  - DRUG DEPENDENCE [None]
  - DRUG WITHDRAWAL SYNDROME [None]
  - ELECTRIC SHOCK [None]
  - EXCITABILITY [None]
  - FEAR [None]
  - FLIGHT OF IDEAS [None]
  - HEADACHE [None]
  - HYPERSOMNIA [None]
  - MUSCLE TIGHTNESS [None]
  - NAUSEA [None]
  - NIGHT SWEATS [None]
  - OEDEMA [None]
  - PALPITATIONS [None]
  - PHOTOPHOBIA [None]
  - SUDDEN ONSET OF SLEEP [None]
  - TETANY [None]
  - TREMOR [None]
